FAERS Safety Report 7774877-6 (Version None)
Quarter: 2011Q3

REPORT INFORMATION
  Report Type: 
  Country: None (occurrence: None)
  Receive Date: 20110921
  Receipt Date: 20110909
  Transmission Date: 20111222
  Serious: Yes (Death, Hospitalization, Other)
  Sender: FDA-Public Use
  Company Number: 2011MA013592

PATIENT
  Age: 55 Year
  Sex: Male

DRUGS (11)
  1. CHLORPROMAZINE [Concomitant]
  2. SIMVASTATIN [Concomitant]
  3. DIAZEPAM [Concomitant]
  4. OMEPRAZOLE [Concomitant]
  5. CLOZAPINE [Suspect]
     Indication: SCHIZOPHRENIA
     Dosage: 400 MG; BID; PO
     Route: 048
     Dates: start: 20081211, end: 20110807
  6. PROCYCLIDINE HYDROCHLORIDE 2MG TAB [Concomitant]
  7. CLOZAPINE [Concomitant]
  8. CITALOPRAM HYDROBROMIDE [Concomitant]
  9. LACTULOSE [Concomitant]
  10. VALPROATE SODIUM [Concomitant]
  11. IBUPROFEN [Suspect]
     Indication: PAIN
     Dosage: 600 MG; QD

REACTIONS (11)
  - MALIGNANT MELANOMA [None]
  - WHITE BLOOD CELL COUNT INCREASED [None]
  - GENERAL PHYSICAL HEALTH DETERIORATION [None]
  - NEUTROPHIL COUNT INCREASED [None]
  - MONOCYTE COUNT INCREASED [None]
  - PNEUMONIA ASPIRATION [None]
  - HAEMOPTYSIS [None]
  - OTORRHOEA [None]
  - REFUSAL OF TREATMENT BY PATIENT [None]
  - METASTASES TO CENTRAL NERVOUS SYSTEM [None]
  - NO THERAPEUTIC RESPONSE [None]
